FAERS Safety Report 15274518 (Version 1)
Quarter: 2018Q3

REPORT INFORMATION
  Report Type: Spontaneous
  Country: US (occurrence: US)
  Receive Date: 20180814
  Receipt Date: 20180814
  Transmission Date: 20181010
  Serious: No
  Sender: FDA-Public Use
  Company Number: US-TEVA-2018-US-943570

PATIENT
  Sex: Female

DRUGS (1)
  1. PORTIA [Suspect]
     Active Substance: ETHINYL ESTRADIOL\LEVONORGESTREL
     Dosage: FORM STRENGTH: 0.15 MG / 0.03 MG
     Route: 065

REACTIONS (1)
  - Menorrhagia [Unknown]
